FAERS Safety Report 4777966-3 (Version None)
Quarter: 2005Q3

REPORT INFORMATION
  Report Type: 
  Country: None (occurrence: None)
  Receive Date: 20050921
  Receipt Date: 20050906
  Transmission Date: 20060218
  Serious: Yes (Hospitalization)
  Sender: FDA-Public Use
  Company Number: 2005EU002031

PATIENT
  Age: 63 Year
  Sex: Male

DRUGS (2)
  1. FK506(TACROLIMUS CAPSULES) CAPSULE [Suspect]
     Indication: LIVER TRANSPLANT
  2. CORTICOSTEROIDS ( ) [Suspect]
     Indication: LIVER TRANSPLANT

REACTIONS (3)
  - ACUTE PULMONARY OEDEMA [None]
  - MYOCARDIAL INFARCTION [None]
  - TACHYARRHYTHMIA [None]
